FAERS Safety Report 18482397 (Version 3)
Quarter: 2020Q4

REPORT INFORMATION
  Report Type: Report from Study
  Country: US (occurrence: US)
  Receive Date: 20201109
  Receipt Date: 20201210
  Transmission Date: 20210114
  Serious: Yes (Hospitalization, Other)
  Sender: FDA-Public Use
  Company Number: US-GILEAD-2020-0491789

PATIENT
  Age: 62 Year
  Sex: Male
  Weight: 75 kg

DRUGS (85)
  1. PLACEBO [Suspect]
     Active Substance: UNSPECIFIED INGREDIENT
     Dosage: MOST RECENT DOSE OF PLACEBO MOST RECENT DOSE OF PLACEBO PRIOR TO AE ONSET ON PRIOR TO AE ONSET
     Route: 042
     Dates: start: 20200808
  2. HEPARIN [Concomitant]
     Active Substance: HEPARIN SODIUM
     Indication: THROMBOSIS PROPHYLAXIS
     Dosage: UNK
     Dates: start: 20200814, end: 20200819
  3. HEPARIN [Concomitant]
     Active Substance: HEPARIN SODIUM
     Indication: DEEP VEIN THROMBOSIS
  4. LOVENOX [Concomitant]
     Active Substance: ENOXAPARIN SODIUM
     Dosage: 80 MG
     Dates: start: 20200812, end: 20200814
  5. INVANZ [Concomitant]
     Active Substance: ERTAPENEM SODIUM
     Indication: SYSTEMIC INFLAMMATORY RESPONSE SYNDROME
     Dosage: 1 G, QD
     Dates: start: 20200814, end: 20200815
  6. LASIX [Concomitant]
     Active Substance: FUROSEMIDE
     Indication: FLUID OVERLOAD
     Dosage: 40 MG, QD
     Dates: start: 20200810, end: 20200810
  7. MUCINEX [Concomitant]
     Active Substance: GUAIFENESIN
     Dosage: 1200 MG, QD
     Dates: start: 20200808
  8. LACTATED RINGERS SOLUTION [Concomitant]
     Active Substance: CALCIUM CHLORIDE\POTASSIUM CHLORIDE\SODIUM CHLORIDE\SODIUM LACTATE
     Dates: start: 20200819, end: 20200819
  9. GUAIFENESIN. [Concomitant]
     Active Substance: GUAIFENESIN
     Dosage: 200 MG
     Dates: start: 20200808, end: 20200825
  10. HYDROMORPHONE [Concomitant]
     Active Substance: HYDROMORPHONE
     Indication: PAIN
     Dosage: 0.5 MG
     Dates: start: 20200819, end: 20200820
  11. REMDESIVIR. [Suspect]
     Active Substance: REMDESIVIR
     Indication: COVID-19 PNEUMONIA
     Dosage: UNK
     Route: 042
     Dates: start: 20200807
  12. BENZONATATE. [Concomitant]
     Active Substance: BENZONATATE
     Indication: COUGH
     Dates: start: 20200806, end: 20200825
  13. FENOFIBRATE. [Concomitant]
     Active Substance: FENOFIBRATE
     Indication: HYPERLIPIDAEMIA
  14. DEXAMETHASONE. [Concomitant]
     Active Substance: DEXAMETHASONE
     Indication: COVID-19
     Dosage: 6 MG, QD
     Dates: start: 20200806, end: 20200814
  15. PEPCIDIN [Concomitant]
     Dosage: 20 MG
     Dates: start: 20200806, end: 20200816
  16. LASIX [Concomitant]
     Active Substance: FUROSEMIDE
     Dosage: 20 MG
     Dates: start: 20200808
  17. RAMELTEON [Concomitant]
     Active Substance: RAMELTEON
     Indication: SLEEP DISORDER THERAPY
     Dosage: 8 MG
     Dates: start: 20200814, end: 20200822
  18. AZITHROMYCIN ANHYDROUS. [Concomitant]
     Active Substance: AZITHROMYCIN ANHYDROUS
     Indication: RESPIRATORY TRACT INFECTION BACTERIAL
     Dosage: 500 MG
     Dates: start: 20200807, end: 20200810
  19. CALCIUM CHLORIDE. [Concomitant]
     Active Substance: CALCIUM CHLORIDE
     Indication: ANAESTHESIA
     Dates: start: 20200819, end: 20200819
  20. INSULIN LISPRO [Concomitant]
     Active Substance: INSULIN LISPRO
     Dosage: UNK
     Dates: start: 20200811
  21. CYCLOPENTOLATE. [Concomitant]
     Active Substance: CYCLOPENTOLATE
     Indication: EYE IRRITATION
     Dates: start: 20200806
  22. DEXAMETHASONE. [Concomitant]
     Active Substance: DEXAMETHASONE
     Indication: INFLAMMATION
     Dates: start: 20200819, end: 20200819
  23. MUCINEX DM [Concomitant]
     Active Substance: DEXTROMETHORPHAN HYDROBROMIDE\GUAIFENESIN
     Dates: start: 20200808
  24. LASIX [Concomitant]
     Active Substance: FUROSEMIDE
     Dosage: 40 MG
     Dates: start: 20200809, end: 20200809
  25. MORPHINE [Concomitant]
     Active Substance: MORPHINE
     Indication: PAIN
     Dosage: 2 MG
     Dates: start: 20200804
  26. ENOXAPARIN [Concomitant]
     Active Substance: ENOXAPARIN
     Dosage: 80 MG
     Dates: start: 20200812, end: 20200814
  27. IOHEXOL [Concomitant]
     Active Substance: IOHEXOL
     Dates: start: 20200806, end: 20200817
  28. ONDANSETRON [Concomitant]
     Active Substance: ONDANSETRON
     Indication: NAUSEA
     Dosage: 4 MG
     Dates: start: 20200815, end: 20200821
  29. ALBUMIN HUMAN [Concomitant]
     Active Substance: ALBUMIN HUMAN
     Indication: ANAESTHESIA
     Dates: start: 20200819, end: 20200819
  30. KETAMINE [Concomitant]
     Active Substance: KETAMINE
     Dates: start: 20200819, end: 20200819
  31. PHENYLEPHRINE [Concomitant]
     Active Substance: PHENYLEPHRINE HYDROCHLORIDE
     Dosage: 100 UG
     Dates: start: 20200819, end: 20200819
  32. PROPOFOL. [Concomitant]
     Active Substance: PROPOFOL
     Dosage: 200 UG
     Dates: start: 20200819, end: 20200819
  33. DEXTROMETHORPHAN-GUAIFENESIN [Concomitant]
     Active Substance: DEXTROMETHORPHAN\GUAIFENESIN
     Indication: COUGH
     Dosage: 10 ML, QD
     Dates: start: 20200808, end: 20200827
  34. INSULIN LISPRO [Concomitant]
     Active Substance: INSULIN LISPRO
     Indication: HYPERGLYCAEMIA
     Dates: start: 20200812
  35. ACETAMINOPHEN. [Concomitant]
     Active Substance: ACETAMINOPHEN
     Indication: ANAESTHESIA
     Dates: start: 20200819, end: 20200819
  36. ATORVASTATIN [Concomitant]
     Active Substance: ATORVASTATIN
     Indication: HYPERLIPIDAEMIA
     Dosage: 40 MG, QD
     Dates: start: 20200806, end: 20200827
  37. LOVENOX [Concomitant]
     Active Substance: ENOXAPARIN SODIUM
     Dosage: 40 MG
     Dates: start: 20200806, end: 20200810
  38. PEPCIDIN [Concomitant]
     Indication: GASTROINTESTINAL DISORDER PROPHYLAXIS
     Dates: start: 20200806
  39. LEVOTHYROXINE. [Concomitant]
     Active Substance: LEVOTHYROXINE
     Indication: HYPOTHYROIDISM
     Dates: start: 20200807
  40. LACTATED RINGERS SOLUTION [Concomitant]
     Active Substance: CALCIUM CHLORIDE\POTASSIUM CHLORIDE\SODIUM CHLORIDE\SODIUM LACTATE
     Dates: start: 20200806, end: 20200819
  41. ENOXAPARIN [Concomitant]
     Active Substance: ENOXAPARIN
     Dosage: 40 MG
     Dates: start: 20200810, end: 20200820
  42. ERTAPENEM. [Concomitant]
     Active Substance: ERTAPENEM SODIUM
     Dosage: 1 G
     Dates: start: 20200814, end: 20200815
  43. MAGNESIUM SULFATE. [Concomitant]
     Active Substance: MAGNESIUM SULFATE
     Indication: ELECTROLYTE IMBALANCE
     Dosage: 2 G
     Dates: start: 20200819, end: 20200819
  44. SUGAMMADEX [Concomitant]
     Active Substance: SUGAMMADEX
     Dosage: 300 MG
     Dates: start: 20200819, end: 20200819
  45. PLACEBO [Suspect]
     Active Substance: UNSPECIFIED INGREDIENT
     Indication: COVID-19 PNEUMONIA
     Dosage: UNK
     Route: 042
     Dates: start: 20200807
  46. ACETAMINOPHEN. [Concomitant]
     Active Substance: ACETAMINOPHEN
     Indication: MYALGIA
     Dosage: 650 MG
     Dates: start: 20200813, end: 20200821
  47. FENOFIBRATE. [Concomitant]
     Active Substance: FENOFIBRATE
     Indication: HYPERTRIGLYCERIDAEMIA
     Dates: start: 20200806, end: 20200816
  48. FAMOTIDINE. [Concomitant]
     Active Substance: FAMOTIDINE
     Indication: GASTROINTESTINAL DISORDER PROPHYLAXIS
     Dates: start: 20200806, end: 20200826
  49. LASIX [Concomitant]
     Active Substance: FUROSEMIDE
     Dosage: 20 MG
     Dates: start: 20200813
  50. LEVOTHYROXINE. [Concomitant]
     Active Substance: LEVOTHYROXINE
     Dosage: 125 UG
     Dates: start: 20200807
  51. FUROSEMIDE. [Concomitant]
     Active Substance: FUROSEMIDE
     Indication: HYPERTENSION
     Dosage: 20 MG
     Dates: start: 20200808, end: 20200813
  52. FENTANYL. [Concomitant]
     Active Substance: FENTANYL
     Dates: start: 20200819, end: 20200819
  53. MIDAZOLAM. [Concomitant]
     Active Substance: MIDAZOLAM
     Dosage: 2 MG
     Dates: start: 20200819, end: 20200819
  54. CEFTRIAXONE. [Concomitant]
     Active Substance: CEFTRIAXONE
     Indication: SEPSIS
     Dosage: 1 G, QD
     Dates: start: 20200809, end: 20200810
  55. CYCLOPENTOLATE. [Concomitant]
     Active Substance: CYCLOPENTOLATE
     Indication: IRITIS
     Dosage: 1 GTT DROPS
     Dates: start: 20200806, end: 20200819
  56. ASCORBIC ACID. [Concomitant]
     Active Substance: ASCORBIC ACID
     Indication: VITAMIN SUPPLEMENTATION
     Dates: start: 20200808, end: 20200828
  57. LASIX [Concomitant]
     Active Substance: FUROSEMIDE
     Dosage: 40 MG, QD
     Dates: start: 20200809, end: 20200810
  58. LACTATED RINGERS SOLUTION [Concomitant]
     Active Substance: CALCIUM CHLORIDE\POTASSIUM CHLORIDE\SODIUM CHLORIDE\SODIUM LACTATE
     Indication: FLUID REPLACEMENT
     Dosage: 1506 ML
     Dates: start: 20200806, end: 20200806
  59. FUROSEMIDE. [Concomitant]
     Active Substance: FUROSEMIDE
     Indication: OEDEMA
  60. LIDOCAINE. [Concomitant]
     Active Substance: LIDOCAINE
     Indication: PAIN
     Dosage: 2 OTHER
     Dates: start: 20200819, end: 20200827
  61. LIDOCAINE. [Concomitant]
     Active Substance: LIDOCAINE
     Indication: PELVIC ABSCESS
     Dosage: 5 ML
     Dates: start: 20200819, end: 20200819
  62. INSULIN [Concomitant]
     Active Substance: INSULIN NOS
     Dates: start: 20200819, end: 20200819
  63. NOREPINEPHRINE. [Concomitant]
     Active Substance: NOREPINEPHRINE
     Dates: start: 20200819, end: 20200819
  64. VECURONIUM [Concomitant]
     Active Substance: VECURONIUM BROMIDE
     Dosage: 2 MG
     Dates: start: 20200819, end: 20200819
  65. IPRATROPIUM [Concomitant]
     Active Substance: IPRATROPIUM
     Indication: COVID-19
     Dates: start: 20200806, end: 20200806
  66. ALBUTEROL [SALBUTAMOL] [Concomitant]
     Active Substance: ALBUTEROL
     Dosage: 2 PUFF
     Dates: start: 20020808
  67. ACETAMINOPHEN. [Concomitant]
     Active Substance: ACETAMINOPHEN
     Indication: PYREXIA
     Dates: start: 20200814
  68. ACETAMINOPHEN. [Concomitant]
     Active Substance: ACETAMINOPHEN
     Indication: COVID-19
     Dosage: 1000 MG
     Dates: start: 20200806, end: 20200828
  69. FAMOTIDINE. [Concomitant]
     Active Substance: FAMOTIDINE
     Dosage: 20 MG
     Dates: start: 20200819, end: 20200819
  70. ROBITUSSIN DM [Concomitant]
     Active Substance: DEXTROMETHORPHAN HYDROBROMIDE\GUAIFENESIN
     Indication: COUGH
     Dosage: 10-100 MG/5 ML LIQUID 10 ML
     Dates: start: 20200806
  71. LOVENOX [Concomitant]
     Active Substance: ENOXAPARIN SODIUM
     Indication: THROMBOSIS PROPHYLAXIS
     Dates: start: 20200810, end: 20200812
  72. ROBITUSSIN (GUAIFENESIN) [Concomitant]
     Active Substance: GUAIFENESIN
     Dosage: 200 MG
     Dates: start: 20200808
  73. POLYETHYLENE GLYCOL [MACROGOL] [Concomitant]
     Active Substance: POLYETHYLENE GLYCOLS
     Dosage: 17 G
     Dates: start: 20200813, end: 20200828
  74. ZINC SULFATE. [Concomitant]
     Active Substance: ZINC SULFATE
     Indication: VITAMIN SUPPLEMENTATION
     Dosage: 220 MG, QD
     Dates: start: 20200808, end: 20200828
  75. AZITHROMYCIN ANHYDROUS. [Concomitant]
     Active Substance: AZITHROMYCIN ANHYDROUS
     Dosage: 500 MG
     Dates: start: 20200810, end: 20200810
  76. MEROPENEM. [Concomitant]
     Active Substance: MEROPENEM
     Dosage: 1 G
     Dates: start: 20200819, end: 20200819
  77. HYDROMORPHONE [Concomitant]
     Active Substance: HYDROMORPHONE
     Indication: DIVERTICULITIS
  78. ROCURONIUM [Concomitant]
     Active Substance: ROCURONIUM BROMIDE
     Dates: start: 20200819, end: 20200819
  79. SUCCINYLCHOLINE [SUXAMETHONIUM] [Concomitant]
     Active Substance: SUCCINYLCHOLINE
     Dates: start: 20200819, end: 20200819
  80. BREO ELLIPTA [Concomitant]
     Active Substance: FLUTICASONE FUROATE\VILANTEROL TRIFENATATE
     Route: 055
     Dates: start: 20200808
  81. LOPERAMIDE [Concomitant]
     Active Substance: LOPERAMIDE
     Indication: DIARRHOEA
     Dosage: 2 MG
     Dates: start: 20200808, end: 20200808
  82. MEROPENEM. [Concomitant]
     Active Substance: MEROPENEM
     Dosage: 1 G
     Dates: start: 20200815, end: 20200826
  83. OFIRMEV [Concomitant]
     Active Substance: ACETAMINOPHEN
     Indication: PYREXIA
     Dates: start: 20200814
  84. GUAIFENESIN. [Concomitant]
     Active Substance: GUAIFENESIN
     Indication: COUGH
     Dosage: 1200 MG
     Dates: start: 20200808, end: 20200828
  85. BUDESONIDE. [Concomitant]
     Active Substance: BUDESONIDE
     Indication: COVID-19
     Dosage: .25 MG
     Dates: start: 20200806, end: 20200807

REACTIONS (1)
  - Diverticular perforation [Recovered/Resolved]

NARRATIVE: CASE EVENT DATE: 20200814
